FAERS Safety Report 10349035 (Version 1)
Quarter: 2014Q3

REPORT INFORMATION
  Report Type: Spontaneous
  Country: US (occurrence: US)
  Receive Date: 20140729
  Receipt Date: 20140729
  Transmission Date: 20150326
  Serious: No
  Sender: FDA-Public Use
  Company Number: US-BAUSCH-BL-2014-000671

PATIENT
  Age: 70 Year
  Sex: Female
  Weight: 102.15 kg

DRUGS (4)
  1. METFORMIN [Concomitant]
     Active Substance: METFORMIN HYDROCHLORIDE
     Indication: PRODUCT USED FOR UNKNOWN INDICATION
     Dates: start: 2012
  2. ANASTROZOLE. [Concomitant]
     Active Substance: ANASTROZOLE
     Indication: PRODUCT USED FOR UNKNOWN INDICATION
     Dates: start: 200806
  3. AMLODIPINE [Concomitant]
     Active Substance: AMLODIPINE BESYLATE
     Indication: PRODUCT USED FOR UNKNOWN INDICATION
     Dates: start: 2012
  4. OPCON-A [Suspect]
     Active Substance: NAPHAZOLINE HYDROCHLORIDE\PHENIRAMINE MALEATE
     Indication: SEASONAL ALLERGY
     Dosage: 1 OR 2 DROPS IN BOTH EYES
     Route: 047
     Dates: start: 20131222, end: 20140120

REACTIONS (2)
  - Mydriasis [Recovered/Resolved]
  - Eye pain [Recovered/Resolved]

NARRATIVE: CASE EVENT DATE: 20140120
